FAERS Safety Report 5480974-0 (Version None)
Quarter: 2007Q4

REPORT INFORMATION
  Report Type: 
  Country: None (occurrence: None)
  Receive Date: 20071009
  Receipt Date: 20070928
  Transmission Date: 20080405
  Serious: Yes (Other)
  Sender: FDA-Public Use
  Company Number: US-AMGEN-STX245548

PATIENT
  Sex: Female

DRUGS (1)
  1. ENBREL [Suspect]
     Indication: ANKYLOSING SPONDYLITIS
     Route: 058
     Dates: start: 20040401, end: 20040801

REACTIONS (5)
  - BLINDNESS [None]
  - CROHN'S DISEASE [None]
  - ISCHAEMIA [None]
  - OPTIC NERVE DISORDER [None]
  - OPTIC NEURITIS [None]
